FAERS Safety Report 26124036 (Version 1)
Quarter: 2025Q4

REPORT INFORMATION
  Report Type: Spontaneous
  Country: JP (occurrence: JP)
  Receive Date: 20251205
  Receipt Date: 20251205
  Transmission Date: 20260118
  Serious: Yes (Other)
  Sender: UCB
  Company Number: JP-UCBJ-CD202515903UCBPHAPROD

PATIENT
  Age: 22 Year

DRUGS (2)
  1. FINTEPLA [Suspect]
     Active Substance: FENFLURAMINE
     Indication: Product used for unknown indication
     Dosage: 0.15 MILLIGRAM/KILOGRAM/DAY
  2. FINTEPLA [Suspect]
     Active Substance: FENFLURAMINE
     Dosage: 0.45 MILLIGRAM/KILOGRAM/DAY

REACTIONS (3)
  - Myoclonic epilepsy [Unknown]
  - Prescribed underdose [Unknown]
  - Off label use [Unknown]
